FAERS Safety Report 16991799 (Version 2)
Quarter: 2019Q4

REPORT INFORMATION
  Report Type: Spontaneous
  Country: BR (occurrence: BR)
  Receive Date: 20191104
  Receipt Date: 20191231
  Transmission Date: 20200122
  Serious: Yes (Hospitalization)
  Sender: FDA-Public Use
  Company Number: BR-AMGEN-BRASP2019182508

PATIENT
  Age: 23 Year
  Sex: Female

DRUGS (1)
  1. ENBREL [Suspect]
     Active Substance: ETANERCEPT
     Indication: PRODUCT USED FOR UNKNOWN INDICATION
     Dosage: 25 MG, ONCE WEEKLY
     Route: 065
     Dates: start: 2009, end: 201909

REACTIONS (3)
  - Off label use [Unknown]
  - Loss of personal independence in daily activities [Unknown]
  - Pain [Unknown]

NARRATIVE: CASE EVENT DATE: 2019
